FAERS Safety Report 8417095-0 (Version None)
Quarter: 2012Q2

REPORT INFORMATION
  Report Type: 
  Country: None (occurrence: None)
  Receive Date: 20120606
  Receipt Date: 20120525
  Transmission Date: 20120825
  Serious: Yes (Life-Threatening)
  Sender: FDA-Public Use
  Company Number: FR-BRISTOL-MYERS SQUIBB COMPANY-16639726

PATIENT
  Age: 56 Year
  Sex: Male

DRUGS (12)
  1. MABTHERA [Suspect]
     Dosage: MAINTENANCE TREATMENT AT THE DOSE OF 375 MG/M2 EVERY 3 WEEKS FROM 09-JAN-2012
     Route: 042
     Dates: start: 20110210
  2. NEXIUM [Concomitant]
     Dosage: 1DF=40 UNITS NOS
  3. BACTRIM [Concomitant]
  4. ROCEPHIN [Concomitant]
  5. BICNU [Suspect]
     Route: 042
     Dates: start: 20110608
  6. TARGOCID [Concomitant]
  7. ETOPOSIDE [Suspect]
     Route: 042
     Dates: start: 20110609, end: 20110612
  8. ALKERAN [Suspect]
     Route: 042
     Dates: start: 20110613
  9. VALACYCLOVIR HYDROCHLORIDE [Concomitant]
  10. LEUCOVORIN CALCIUM [Concomitant]
     Dosage: 1DF=1 TABLET LEDERFOLINE 25
  11. CYTARABINE [Suspect]
     Route: 042
     Dates: start: 20110609, end: 20110612
  12. CISPLATIN [Concomitant]
     Dosage: 10-FEB-2011, 04-MAR-2011, 29-MAR-2011 AND 20-APR-2011
     Dates: start: 20110210, end: 20110411

REACTIONS (2)
  - CARDIAC FAILURE [None]
  - ACUTE PULMONARY OEDEMA [None]
